FAERS Safety Report 16818401 (Version 1)
Quarter: 2019Q3

REPORT INFORMATION
  Report Type: Spontaneous
  Country: US (occurrence: US)
  Receive Date: 20190917
  Receipt Date: 20190917
  Transmission Date: 20191005
  Serious: No
  Sender: FDA-Public Use
  Company Number: US-JNJFOC-20190911202

PATIENT
  Age: 39 Year
  Sex: Male
  Weight: 113.5 kg

DRUGS (2)
  1. REMICADE [Suspect]
     Active Substance: INFLIXIMAB
     Indication: COLITIS ULCERATIVE
     Route: 042
     Dates: start: 2009, end: 20190708
  2. BALSALAZIDE [Concomitant]
     Active Substance: BALSALAZIDE
     Indication: COLITIS ULCERATIVE
     Route: 065

REACTIONS (4)
  - Drug specific antibody [Recovered/Resolved]
  - Dizziness [Recovered/Resolved]
  - Fatigue [Recovered/Resolved]
  - Infusion related reaction [Recovering/Resolving]

NARRATIVE: CASE EVENT DATE: 20190708
